FAERS Safety Report 22365003 (Version 1)
Quarter: 2023Q2

REPORT INFORMATION
  Report Type: Spontaneous
  Country: FR (occurrence: FR)
  Receive Date: 20230525
  Receipt Date: 20230525
  Transmission Date: 20230721
  Serious: Yes (Other)
  Sender: FDA-Public Use
  Company Number: None

PATIENT
  Age: 66 Year
  Sex: Female
  Weight: 72 kg

DRUGS (2)
  1. FASTURTEC [Suspect]
     Active Substance: RASBURICASE
     Indication: Hyperuricaemia
     Dosage: DOSE INCONNUE
     Route: 065
     Dates: start: 20230408, end: 20230408
  2. OBINUTUZUMAB [Suspect]
     Active Substance: OBINUTUZUMAB
     Indication: Chronic lymphocytic leukaemia
     Dosage: 100 MG
     Route: 065
     Dates: start: 20230408, end: 20230408

REACTIONS (1)
  - Hepatic cytolysis [Recovering/Resolving]

NARRATIVE: CASE EVENT DATE: 20230409
